FAERS Safety Report 6301061-5 (Version None)
Quarter: 2009Q3

REPORT INFORMATION
  Report Type: 
  Country: None (occurrence: None)
  Receive Date: 20090807
  Receipt Date: 20090803
  Transmission Date: 20100115
  Serious: Yes (Other)
  Sender: FDA-Public Use
  Company Number: US-ASTRAZENECA-2009UW14880

PATIENT
  Age: 681 Month
  Sex: Female
  Weight: 72.6 kg

DRUGS (7)
  1. ARIMIDEX [Suspect]
     Indication: BREAST CANCER STAGE II
     Route: 048
     Dates: start: 20041201
  2. HERBAL [Concomitant]
     Indication: SUPPLEMENTATION THERAPY
  3. GLUMETZA [Concomitant]
     Indication: DIABETES MELLITUS
  4. NEXIUM [Concomitant]
     Route: 048
  5. COUMADIN [Concomitant]
     Dates: start: 20080501
  6. SYNTHROID [Concomitant]
     Indication: THYROID DISORDER
     Route: 048
     Dates: start: 20080501
  7. LICORICE [Concomitant]

REACTIONS (6)
  - ADRENAL ADENOMA [None]
  - ANAEMIA [None]
  - CONTRALATERAL BREAST CANCER [None]
  - DEEP VEIN THROMBOSIS [None]
  - HYPOCALCAEMIA [None]
  - THYROID CANCER [None]
